FAERS Safety Report 21321231 (Version 5)
Quarter: 2022Q4

REPORT INFORMATION
  Report Type: Spontaneous
  Country: JP (occurrence: JP)
  Receive Date: 20220912
  Receipt Date: 20221212
  Transmission Date: 20230112
  Serious: Yes (Other)
  Sender: FDA-Public Use
  Company Number: JP-ONO-2021JP032428

PATIENT
  Age: 49 Year
  Sex: Male
  Weight: 48 kg

DRUGS (25)
  1. OPDIVO [Suspect]
     Active Substance: NIVOLUMAB
     Indication: Gastric cancer
     Dosage: 240 MG
     Route: 041
     Dates: start: 20220427
  2. PACLITAXEL [Suspect]
     Active Substance: PACLITAXEL
     Indication: Gastric cancer
     Dates: start: 20211013, end: 20211013
  3. CYRAMZA [Suspect]
     Active Substance: RAMUCIRUMAB
     Indication: Gastric cancer
     Dosage: 300 MG
     Dates: start: 20211013, end: 20220415
  4. CISPLATIN [Suspect]
     Active Substance: CISPLATIN
     Indication: Gastric cancer
     Dosage: UNK
  5. ANAMORELIN HYDROCHLORIDE [Suspect]
     Active Substance: ANAMORELIN HYDROCHLORIDE
     Indication: Cachexia
     Dosage: 100 MG, EVERYDAY
     Route: 048
     Dates: start: 20210906
  6. CAPECITABINE [Concomitant]
     Active Substance: CAPECITABINE
     Indication: Gastric cancer
     Dosage: 2400 MG, STOP DATE/TIME :2021/10/06
  7. CAPECITABINE [Concomitant]
     Active Substance: CAPECITABINE
     Dosage: 2400 MG, STOP DATE/TIME :2021/10/06
  8. CAPECITABINE [Concomitant]
     Active Substance: CAPECITABINE
     Dates: end: 20211006
  9. MAGNESIUM OXIDE [Concomitant]
     Active Substance: MAGNESIUM OXIDE
     Dosage: 990 MG, EVERYDAY
  10. MAGNESIUM OXIDE [Concomitant]
     Active Substance: MAGNESIUM OXIDE
     Indication: Product used for unknown indication
     Dosage: 990 MG, EVERYDAY
  11. MAGNESIUM OXIDE [Concomitant]
     Active Substance: MAGNESIUM OXIDE
     Dosage: 990 MG, EVERYDAY
  12. METHYLCOBALAMIN [Concomitant]
     Active Substance: METHYLCOBALAMIN
     Indication: Hypoaesthesia
     Dosage: 1500 G, EVERYDAY, STOP DATE/TIME :2021/10/05
  13. METHYLCOBALAMIN [Concomitant]
     Active Substance: METHYLCOBALAMIN
     Indication: Prophylaxis
     Dosage: 1500 G, EVERYDAY, STOP DATE/TIME :2021/10/05
  14. METHYLCOBALAMIN [Concomitant]
     Active Substance: METHYLCOBALAMIN
     Dates: end: 20211005
  15. HERBALS [Concomitant]
     Active Substance: HERBALS
     Indication: Hypoaesthesia
     Dosage: 7.5 G, EVERYDAY
     Dates: start: 20210906
  16. HERBALS [Concomitant]
     Active Substance: HERBALS
     Indication: Prophylaxis
  17. CALONAL [Concomitant]
     Active Substance: ACETAMINOPHEN
     Indication: Product used for unknown indication
     Dosage: 1800 MG, EVERYDAY, STOP DATE/TIME :2021/10/05
  18. CALONAL [Concomitant]
     Active Substance: ACETAMINOPHEN
     Dates: end: 20211005
  19. VONOPRAZAN FUMARATE [Concomitant]
     Active Substance: VONOPRAZAN FUMARATE
     Indication: Prophylaxis
     Dates: end: 20211005
  20. HERBALS [Concomitant]
     Active Substance: HERBALS
     Indication: Product used for unknown indication
     Dates: end: 20211005
  21. OXYCONTIN [Concomitant]
     Active Substance: OXYCODONE HYDROCHLORIDE
     Indication: Product used for unknown indication
     Dosage: 20 MG, EVERYDAY
     Dates: start: 20211020
  22. HERBALS [Concomitant]
     Active Substance: HERBALS
     Indication: Product used for unknown indication
     Dates: end: 20211005
  23. BROTIZOLAM [Concomitant]
     Active Substance: BROTIZOLAM
     Indication: Product used for unknown indication
     Dosage: 0.25 MG, EVERYDAY
  24. PENTAZOCINE [Concomitant]
     Active Substance: PENTAZOCINE
     Indication: Product used for unknown indication
     Dates: end: 20211019
  25. PURSENNID [SENNA ALEXANDRINA LEAF] [Concomitant]
     Indication: Product used for unknown indication
     Dosage: 12 MG, EVERYDAY
     Dates: start: 20211027

REACTIONS (5)
  - Hypoaesthesia [Unknown]
  - Eczema [Recovering/Resolving]
  - Dyskinesia [Recovering/Resolving]
  - Dysuria [Unknown]
  - Condition aggravated [Unknown]

NARRATIVE: CASE EVENT DATE: 20211103
